FAERS Safety Report 9366108 (Version 1)
Quarter: 2013Q2

REPORT INFORMATION
  Report Type: Spontaneous
  Country: US (occurrence: US)
  Receive Date: 20130625
  Receipt Date: 20130625
  Transmission Date: 20140414
  Serious: No
  Sender: FDA-Public Use
  Company Number: US-BAYER-2013-077008

PATIENT
  Age: 21 Year
  Sex: Female

DRUGS (1)
  1. SKYLA [Suspect]
     Indication: CONTRACEPTION
     Dosage: 13.5 MG/24HR, CONT
     Route: 015
     Dates: start: 20130620, end: 20130620

REACTIONS (2)
  - Device deployment issue [None]
  - Discomfort [None]
